FAERS Safety Report 7561370-9 (Version None)
Quarter: 2011Q2

REPORT INFORMATION
  Report Type: 
  Country: None (occurrence: None)
  Receive Date: 20110621
  Receipt Date: 20101209
  Transmission Date: 20111010
  Serious: No
  Sender: FDA-Public Use
  Company Number: US-ASTRAZENECA-2010SE55024

PATIENT
  Sex: Male
  Weight: 74.8 kg

DRUGS (3)
  1. PULMICORT FLEXHALER [Suspect]
     Indication: ASTHMA
     Dosage: 180 MCG TWO PUFFS PM ONLY
     Route: 055
  2. PULMICORT FLEXHALER [Suspect]
     Dosage: TOTAL DAILY DOSAGE 720 MCG
     Route: 055
  3. PROVENTIL [Concomitant]

REACTIONS (4)
  - DYSPNOEA [None]
  - CHEST DISCOMFORT [None]
  - WHEEZING [None]
  - DRUG DOSE OMISSION [None]
